FAERS Safety Report 24324225 (Version 1)
Quarter: 2024Q3

REPORT INFORMATION
  Report Type: Spontaneous
  Country: IR (occurrence: None)
  Receive Date: 20240916
  Receipt Date: 20240916
  Transmission Date: 20241016
  Serious: Yes (Hospitalization)
  Sender: ASTRAZENECA
  Company Number: 2024A206033

PATIENT
  Age: 64 Year
  Sex: Female
  Weight: 65 kg

DRUGS (13)
  1. ROSUVASTATIN [Interacting]
     Active Substance: ROSUVASTATIN\ROSUVASTATIN CALCIUM
     Indication: Diabetic nephropathy
     Route: 048
  2. METFORMIN\SITAGLIPTIN [Interacting]
     Active Substance: METFORMIN\SITAGLIPTIN
     Dosage: METFORMIN 500 MG/ SITAGLIPTIN 50 MG TWICE A DAY
     Route: 048
  3. EMPAGLIFLOZIN\METFORMIN HYDROCHLORIDE [Concomitant]
     Active Substance: EMPAGLIFLOZIN\METFORMIN HYDROCHLORIDE
     Dosage: EMPAGLIFLOZIN 5 MG/METFORMIN 500 MG DAILY
     Route: 048
  4. NITROGLYCERIN [Concomitant]
     Active Substance: NITROGLYCERIN
  5. ASPIRIN [Concomitant]
     Active Substance: ASPIRIN
  6. VALZOMIX [Concomitant]
     Indication: Diabetic nephropathy
     Dosage: AMLODIPINE 5 MG/VALSARTAN 160 MG DAILY
  7. GABAPENTIN [Concomitant]
     Active Substance: GABAPENTIN
  8. CLOPIDOGREL [Concomitant]
     Active Substance: CLOPIDOGREL BISULFATE
  9. INDAPAMIDE [Concomitant]
     Active Substance: INDAPAMIDE
  10. HYDROCHLOROTHIAZIDE [Concomitant]
     Active Substance: HYDROCHLOROTHIAZIDE
  11. ESCITALOPRAM [Concomitant]
     Active Substance: ESCITALOPRAM OXALATE
  12. PANTOPRAZOLE [Concomitant]
     Active Substance: PANTOPRAZOLE
  13. LANTUS [Concomitant]
     Active Substance: INSULIN GLARGINE
     Dosage: 30 UNIT DAILY

REACTIONS (3)
  - Rhabdomyolysis [Unknown]
  - Drug interaction [Unknown]
  - Off label use [Unknown]
